FAERS Safety Report 8289181-X (Version None)
Quarter: 2012Q2

REPORT INFORMATION
  Report Type: 
  Country: None (occurrence: None)
  Receive Date: 20120417
  Receipt Date: 20120411
  Transmission Date: 20120825
  Serious: No
  Sender: FDA-Public Use
  Company Number: PHEH2012US005408

PATIENT
  Sex: Male
  Weight: 129.25 kg

DRUGS (5)
  1. TESTOSTERONE [Concomitant]
     Route: 062
  2. OMEPRAZOLE [Concomitant]
     Dosage: 20 MG, QD
     Route: 048
  3. GILENYA [Suspect]
     Indication: RELAPSING-REMITTING MULTIPLE SCLEROSIS
     Dosage: 0.5 MG, QD
     Route: 048
     Dates: end: 20111101
  4. VITAMIN D [Concomitant]
  5. PREDNISONE TAB [Concomitant]
     Dosage: 20 MG, QD
     Route: 048

REACTIONS (10)
  - LIVER FUNCTION TEST ABNORMAL [None]
  - SLEEP APNOEA SYNDROME [None]
  - BLOOD UREA NITROGEN/CREATININE RATIO DECREASED [None]
  - DIZZINESS [None]
  - NERVOUS SYSTEM DISORDER [None]
  - FATIGUE [None]
  - ASPARTATE AMINOTRANSFERASE INCREASED [None]
  - ALANINE AMINOTRANSFERASE INCREASED [None]
  - MULTIPLE SCLEROSIS RELAPSE [None]
  - SENSORY DISTURBANCE [None]
